FAERS Safety Report 17964226 (Version 1)
Quarter: 2020Q2

REPORT INFORMATION
  Report Type: Spontaneous
  Country: US (occurrence: US)
  Receive Date: 20200630
  Receipt Date: 20200630
  Transmission Date: 20200714
  Serious: No
  Sender: FDA-Public Use
  Company Number: US-INDIVIOR US-INDV-124929-2020

PATIENT
  Sex: Male

DRUGS (2)
  1. SUBLOCADE [Suspect]
     Active Substance: BUPRENORPHINE
     Indication: DRUG DEPENDENCE
     Dosage: UNK
     Route: 065
     Dates: start: 20200331
  2. BUPRENORPHINE TABLET [Suspect]
     Active Substance: BUPRENORPHINE
     Indication: DRUG DEPENDENCE
     Dosage: 4 MILLIGRAM, BID TILL 30-MAR-2020
     Route: 060

REACTIONS (2)
  - Drug level abnormal [Unknown]
  - Inappropriate schedule of product administration [Recovered/Resolved]
